FAERS Safety Report 6177123-2 (Version None)
Quarter: 2009Q2

REPORT INFORMATION
  Report Type: 
  Country: None (occurrence: None)
  Receive Date: 20090504
  Receipt Date: 20090430
  Transmission Date: 20091009
  Serious: No
  Sender: FDA-Public Use
  Company Number: US-B.I. PHARMACEUTICALS,INC./RIDGEFIELD-2009-BP-04722BP

PATIENT
  Age: 82 Year
  Sex: Female
  Weight: 84.82 kg

DRUGS (4)
  1. MICARDIS [Suspect]
     Indication: HYPERTENSION
     Dosage: 80MG
     Dates: start: 20090316, end: 20090316
  2. SYNTHROID [Concomitant]
     Dosage: 50MCG
  3. ATENOLOL [Concomitant]
     Dosage: 50MG
     Dates: start: 20040513
  4. ZYLOPRIM [Concomitant]
     Dosage: 300MG
     Dates: start: 20050420

REACTIONS (2)
  - DIARRHOEA [None]
  - MUSCLE SPASMS [None]
